FAERS Safety Report 10750670 (Version 2)
Quarter: 2015Q3

REPORT INFORMATION
  Report Type: Report from Study
  Country: US (occurrence: US)
  Receive Date: 20150130
  Receipt Date: 20150731
  Transmission Date: 20151125
  Serious: Yes (Other)
  Sender: FDA-Public Use
  Company Number: CA-RANBAXY-2014US-81511

PATIENT
  Sex: Male

DRUGS (1)
  1. ISOTRETINOIN [Suspect]
     Active Substance: ISOTRETINOIN
     Indication: PRODUCT USED FOR UNKNOWN INDICATION
     Dosage: UNK
     Route: 065

REACTIONS (19)
  - Inflammation [Unknown]
  - Tachycardia [Not Recovered/Not Resolved]
  - Irritability [Not Recovered/Not Resolved]
  - Memory impairment [Not Recovered/Not Resolved]
  - Nerve injury [Unknown]
  - Teeth brittle [Unknown]
  - Inflammatory bowel disease [Recovering/Resolving]
  - Rash [Recovered/Resolved]
  - Lethargy [Not Recovered/Not Resolved]
  - Ingrown hair [Unknown]
  - Madarosis [Not Recovered/Not Resolved]
  - Dysuria [Recovered/Resolved]
  - Alopecia [Unknown]
  - Orthostatic hypotension [Not Recovered/Not Resolved]
  - Photosensitivity reaction [Unknown]
  - Epididymitis [Not Recovered/Not Resolved]
  - Vision blurred [Not Recovered/Not Resolved]
  - Constipation [Not Recovered/Not Resolved]
  - Diarrhoea [Not Recovered/Not Resolved]
